FAERS Safety Report 9727149 (Version 1)
Quarter: 2013Q4

REPORT INFORMATION
  Report Type: Spontaneous
  Country: FR (occurrence: FR)
  Receive Date: 20131203
  Receipt Date: 20131203
  Transmission Date: 20140711
  Serious: Yes (Hospitalization)
  Sender: FDA-Public Use
  Company Number: FR-B.I. PHARMACEUTICALS,INC./RIDGEFIELD-2013-BI-40039YA

PATIENT
  Age: 80 Year
  Sex: Male

DRUGS (10)
  1. TAMSULOSINA [Suspect]
     Dosage: 0.4 MG
     Route: 048
     Dates: end: 20130930
  2. RISPERIDONE [Suspect]
     Indication: SCHIZOPHRENIA, PARANOID TYPE
     Dosage: 3 MG
     Route: 048
     Dates: end: 20131005
  3. ALIMEMAZINE TARTRATE [Suspect]
     Dosage: 5 MG
     Route: 048
     Dates: end: 20130930
  4. DULOXETINE HYDROCHLORIDE [Suspect]
     Dosage: 30 MG
     Route: 048
     Dates: end: 20130930
  5. SERESTA (OXAZEPAM) [Concomitant]
     Route: 065
  6. MODOPAR (BENSERAZIDE HYDROCHLORIDE, LEVODOPA) [Concomitant]
     Dosage: STRENGTH: 100/25 MG
     Route: 065
  7. INEXIUM [Concomitant]
  8. NOCTAMIDE (LORMETAZEPAM) [Concomitant]
     Route: 065
  9. OXEOL (BAMBUTEROL HYDROCHLORIDE) [Concomitant]
     Route: 065
  10. MOVICOL [Concomitant]

REACTIONS (1)
  - Gastrointestinal obstruction [Recovered/Resolved]
